FAERS Safety Report 6724355-8 (Version None)
Quarter: 2010Q2

REPORT INFORMATION
  Report Type: 
  Country: None (occurrence: None)
  Receive Date: 20100513
  Receipt Date: 20100503
  Transmission Date: 20101027
  Serious: Yes (Hospitalization)
  Sender: FDA-Public Use
  Company Number: DE-WYE-H14995110

PATIENT
  Sex: Female

DRUGS (2)
  1. PANTOPRAZOLE [Suspect]
     Dosage: 40 MG, FREQUENCY UNKNOWN
     Route: 048
  2. BROMAZEPAM [Suspect]
     Dosage: 60 MG ^HIGH DOSE^
     Route: 048

REACTIONS (4)
  - DEPRESSED LEVEL OF CONSCIOUSNESS [None]
  - HEART RATE DECREASED [None]
  - OVERDOSE [None]
  - SOMNOLENCE [None]
